FAERS Safety Report 10435792 (Version 2)
Quarter: 2014Q3

REPORT INFORMATION
  Report Type: Spontaneous
  Country: JP (occurrence: None)
  Receive Date: 20140904
  Receipt Date: 20140904
  Transmission Date: 20150326
  Serious: Yes (Death, Life-Threatening, Other)
  Sender: FDA-Public Use
  Company Number: 2014MPI01070

PATIENT
  Age: 48 Year
  Sex: Male
  Weight: 57.5 kg

DRUGS (8)
  1. CORTICOSTEROIDS [Concomitant]
     Active Substance: CORTICOSTEROID NOS
  2. DEXART (DEXAMETHASONE SODIUM PHOSPHATE) [Concomitant]
  3. FLUCONAZOLE (FLUCONAZOLE) [Concomitant]
     Active Substance: FLUCONAZOLE
  4. ADCETRIS [Suspect]
     Active Substance: BRENTUXIMAB VEDOTIN
     Indication: ANAPLASTIC LARGE-CELL LYMPHOMA
     Dosage: 1.8 MG/KG, Q21D, IV DRIP
     Route: 041
     Dates: start: 20140514, end: 20140613
  5. IFOMIDE (IFOSFAMIDE) [Concomitant]
  6. BAKTAR (SULFAMETHOXAZOLE, TRIMETHOPRIM) TABLET [Concomitant]
     Active Substance: SULFAMETHOXAZOLE\TRIMETHOPRIM
  7. LASTET (ETOPOSIDE) [Concomitant]
  8. CARBOPLATIN (CARBOPLATIN) [Concomitant]
     Active Substance: CARBOPLATIN

REACTIONS (3)
  - Anal abscess [None]
  - Sepsis [None]
  - Neutropenia [None]

NARRATIVE: CASE EVENT DATE: 20140529
